FAERS Safety Report 25624452 (Version 1)
Quarter: 2025Q3

REPORT INFORMATION
  Report Type: Spontaneous
  Country: GB (occurrence: GB)
  Receive Date: 20250730
  Receipt Date: 20250730
  Transmission Date: 20251021
  Serious: Yes (Other)
  Sender: ELI LILLY AND COMPANY
  Company Number: GB-MHRA-TPP28608372C9157705YC1752596870575

PATIENT
  Age: 60 Year
  Sex: Female
  Weight: 102 kg

DRUGS (3)
  1. MOUNJARO [Suspect]
     Active Substance: TIRZEPATIDE
     Indication: Product used for unknown indication
     Route: 065
     Dates: end: 202506
  2. ALENDRONIC ACID [Concomitant]
     Active Substance: ALENDRONIC ACID
     Indication: Product used for unknown indication
     Dosage: TAKE ONE TABLET ONCE A WEEK, SWALLOW WHOLE WITH...
     Dates: start: 20231024
  3. CALCI D [Concomitant]
     Indication: Product used for unknown indication
     Dosage: CHEW ONE TABLET ONCE A DAY TO HELP PREVENT OSTE...
     Dates: start: 20231024

REACTIONS (1)
  - Osteoarthritis [Unknown]
